FAERS Safety Report 7626863-4 (Version None)
Quarter: 2011Q3

REPORT INFORMATION
  Report Type: 
  Country: None (occurrence: None)
  Receive Date: 20110721
  Receipt Date: 20110711
  Transmission Date: 20111222
  Serious: Yes (Hospitalization)
  Sender: FDA-Public Use
  Company Number: FR-SANOFI-AVENTIS-2011SA022701

PATIENT
  Age: 89 Year
  Sex: Female

DRUGS (14)
  1. BISOPROLOL FUMARATE [Concomitant]
     Route: 048
  2. PREVISCAN [Interacting]
     Route: 048
     Dates: start: 20101101, end: 20101213
  3. LEVOTHYROXINE SODIUM [Concomitant]
     Route: 048
  4. OXAZEPAM [Concomitant]
     Route: 048
  5. ESOMEPRAZOLE MAGNESIUM [Concomitant]
     Route: 048
  6. LASIX [Concomitant]
     Route: 048
  7. CORDARONE [Concomitant]
     Route: 048
     Dates: start: 20101101, end: 20101215
  8. KARDEGIC [Concomitant]
     Route: 048
  9. ALLOPURINOL [Concomitant]
     Route: 048
  10. FORLAX [Concomitant]
     Route: 048
  11. MULTAQ [Suspect]
     Indication: ATRIAL FIBRILLATION
     Route: 048
     Dates: start: 20101210
  12. CORDARONE [Concomitant]
     Indication: ATRIAL FIBRILLATION
     Route: 048
     Dates: start: 20101101, end: 20101101
  13. MODOPAR [Concomitant]
     Route: 048
  14. ACETAMINOPHEN [Concomitant]
     Route: 048

REACTIONS (4)
  - OVERDOSE [None]
  - INTERNATIONAL NORMALISED RATIO INCREASED [None]
  - INTRA-ABDOMINAL HAEMATOMA [None]
  - DRUG INTERACTION [None]
